APPROVED DRUG PRODUCT: HALOBETASOL PROPIONATE
Active Ingredient: HALOBETASOL PROPIONATE
Strength: 0.05%
Dosage Form/Route: OINTMENT;TOPICAL
Application: A076994 | Product #001
Applicant: SUN PHARMA CANADA INC
Approved: Dec 16, 2004 | RLD: No | RS: No | Type: DISCN